FAERS Safety Report 21592622 (Version 3)
Quarter: 2022Q4

REPORT INFORMATION
  Report Type: Spontaneous
  Country: US (occurrence: US)
  Receive Date: 20221114
  Receipt Date: 20221206
  Transmission Date: 20230113
  Serious: Yes (Hospitalization, Other)
  Sender: FDA-Public Use
  Company Number: US-Calliditas-2022CAL00509

PATIENT
  Age: 33 Year
  Sex: Male

DRUGS (3)
  1. TARPEYO [Suspect]
     Active Substance: BUDESONIDE
     Indication: IgA nephropathy
     Dosage: 16 MG (4 MG CAPSULES) ONCE DAILY
     Route: 048
     Dates: start: 20220914
  2. JARDIANCE [Concomitant]
     Active Substance: EMPAGLIFLOZIN
  3. LOSARTAN [Concomitant]
     Active Substance: LOSARTAN

REACTIONS (4)
  - Seizure [Recovered/Resolved]
  - Procedural pain [Recovered/Resolved]
  - Vasectomy [Recovered/Resolved]
  - Post procedural complication [Recovered/Resolved]

NARRATIVE: CASE EVENT DATE: 20221025
